FAERS Safety Report 7984125-X (Version None)
Quarter: 2011Q4

REPORT INFORMATION
  Report Type: 
  Country: None (occurrence: None)
  Receive Date: 20111216
  Receipt Date: 20111202
  Transmission Date: 20120403
  Serious: Yes (Hospitalization, Disabling)
  Sender: FDA-Public Use
  Company Number: DE-PFIZER INC-K200601295

PATIENT
  Age: 48 Year
  Sex: Male

DRUGS (15)
  1. RAMIPRIL [Suspect]
     Dosage: 2.5 MG, 1X/DAY
     Route: 048
     Dates: start: 19980101, end: 20010101
  2. RAMIPRIL [Suspect]
     Dosage: 5 MG, 1X/DAY
     Route: 048
     Dates: start: 20030616, end: 20060323
  3. HYDROCHLOROTHIAZIDE [Suspect]
     Indication: HYPERTENSION
     Dosage: UNK
     Route: 048
     Dates: start: 20010101, end: 20060323
  4. XIPAMIDE [Concomitant]
     Dosage: UNK
  5. RAMIPRIL [Suspect]
     Dosage: 2.5 MG, 1X/DAY
     Route: 048
     Dates: start: 20020705, end: 20030616
  6. CARVEDILOL [Concomitant]
     Dosage: UNK
  7. TRIAMTERENE [Concomitant]
     Dosage: UNK
  8. ACTRAPID HM [Concomitant]
     Dosage: UNK
  9. RAMIPRIL [Suspect]
     Dosage: 1.25 MG, 1X/DAY
     Route: 048
     Dates: start: 19971107, end: 19980101
  10. CARVEDILOL [Concomitant]
     Dosage: UNK
  11. ATORVASTATIN [Concomitant]
     Dosage: UNK
     Dates: start: 20030825
  12. XIPAMIDE [Concomitant]
     Dosage: UNK
  13. TRIAMTERENE [Concomitant]
     Dosage: UNK
  14. ACTRAPID HM [Concomitant]
     Dosage: UNK
  15. ATORVASTATIN [Concomitant]
     Dosage: UNK
     Dates: start: 20030825

REACTIONS (10)
  - MUSCLE INJURY [None]
  - MUSCLE DISORDER [None]
  - CARPAL TUNNEL SYNDROME [None]
  - MYALGIA [None]
  - DIABETIC NEUROPATHY [None]
  - MUSCLE ATROPHY [None]
  - MUSCLE SWELLING [None]
  - MUSCLE SPASMS [None]
  - MYOPATHY [None]
  - SPINAL DISORDER [None]
